FAERS Safety Report 25494239 (Version 2)
Quarter: 2025Q3

REPORT INFORMATION
  Report Type: Spontaneous
  Country: TR (occurrence: TR)
  Receive Date: 20250630
  Receipt Date: 20250711
  Transmission Date: 20251021
  Serious: Yes (Hospitalization)
  Sender: TEVA
  Company Number: TR-TEVA-VS-3345719

PATIENT
  Age: 4 Year
  Sex: Female

DRUGS (6)
  1. AMOXICILLIN\CLAVULANIC ACID [Suspect]
     Active Substance: AMOXICILLIN\CLAVULANIC ACID
     Indication: Antibiotic therapy
     Route: 065
  2. RITUXIMAB [Suspect]
     Active Substance: RITUXIMAB
     Indication: Paraneoplastic encephalomyelitis
     Route: 065
  3. CEFOTAXIME [Concomitant]
     Active Substance: CEFOTAXIME SODIUM
     Indication: Streptococcal infection
     Route: 042
  4. CEFEPIME [Concomitant]
     Active Substance: CEFEPIME HYDROCHLORIDE
     Indication: Streptococcal infection
     Route: 065
  5. VANCOMYCIN [Suspect]
     Active Substance: VANCOMYCIN
     Indication: Streptococcal infection
     Route: 042
  6. TOCILIZUMAB [Suspect]
     Active Substance: TOCILIZUMAB
     Indication: Paraneoplastic encephalomyelitis
     Route: 065

REACTIONS (7)
  - Drug ineffective [Unknown]
  - Mastoiditis [Recovered/Resolved]
  - Streptococcal infection [Recovered/Resolved]
  - CNS ventriculitis [Recovered/Resolved]
  - Meningitis pneumococcal [Recovered/Resolved]
  - Cerebral venous sinus thrombosis [Unknown]
  - Drug hypersensitivity [Unknown]
